FAERS Safety Report 22237676 (Version 3)
Quarter: 2023Q2

REPORT INFORMATION
  Report Type: Spontaneous
  Country: FR (occurrence: FR)
  Receive Date: 20230421
  Receipt Date: 20230508
  Transmission Date: 20230722
  Serious: Yes (Hospitalization, Other)
  Sender: FDA-Public Use
  Company Number: FR-SUN PHARMACEUTICAL INDUSTRIES LTD-2023RR-385713

PATIENT
  Sex: Male
  Weight: 53 kg

DRUGS (6)
  1. ODOMZO [Suspect]
     Active Substance: SONIDEGIB
     Indication: Basal cell carcinoma
     Dosage: 200 MILLIGRAM, DAILY
     Route: 048
     Dates: start: 20220622, end: 20220716
  2. OXAZEPAM [Concomitant]
     Active Substance: OXAZEPAM
     Indication: Product used for unknown indication
     Dosage: 10 MILLIGRAM, DAILY
     Route: 065
  3. BISOPROLOL [Concomitant]
     Active Substance: BISOPROLOL
     Indication: Product used for unknown indication
     Dosage: 5 MILLIGRAM, DAILY
     Route: 065
  4. FUROSEMIDE [Concomitant]
     Active Substance: FUROSEMIDE
     Indication: Product used for unknown indication
     Dosage: 20 MILLIGRAM, DAILY
     Route: 065
  5. POTASSIUM CHLORIDE [Concomitant]
     Active Substance: POTASSIUM CHLORIDE
     Indication: Product used for unknown indication
     Dosage: 1 DOSAGE FORM, DAILY
     Route: 065
  6. MORPHINE [Concomitant]
     Active Substance: MORPHINE
     Indication: Product used for unknown indication
     Dosage: 1 DOSAGE FORM, BID, ONE IN THE MORNING AND ONE IN THE EVENING
     Route: 065

REACTIONS (4)
  - Duodenal ulcer [Not Recovered/Not Resolved]
  - Peritonitis [Not Recovered/Not Resolved]
  - Septic shock [Not Recovered/Not Resolved]
  - Pancreatitis [Unknown]

NARRATIVE: CASE EVENT DATE: 20220701
